FAERS Safety Report 19282990 (Version 1)
Quarter: 2021Q2

REPORT INFORMATION
  Report Type: Spontaneous
  Country: US (occurrence: US)
  Receive Date: 20210520
  Receipt Date: 20210520
  Transmission Date: 20210717
  Serious: No
  Sender: FDA-Public Use
  Company Number: None

PATIENT
  Sex: Female
  Weight: 56.25 kg

DRUGS (19)
  1. AMLODIPINE [Concomitant]
     Active Substance: AMLODIPINE BESYLATE
  2. REFRESH TEARS [Concomitant]
     Active Substance: CARBOXYMETHYLCELLULOSE SODIUM
  3. SHINGRIX [Concomitant]
     Active Substance: RECOMBINANT VARICELLA ZOSTER VIRUS (VZV) GLYCOPROTEIN E
  4. LEVOFLOXACIN. [Concomitant]
     Active Substance: LEVOFLOXACIN
  5. FLUZONE [Concomitant]
     Active Substance: INFLUENZA A VIRUS A/CALIFORNIA/7/2009 X-179A (H1N1) ANTIGEN (FORMALDEHYDE INACTIVATED)\INFLUENZA A VIRUS A/VICTORIA/210/2009 X-187 (H3N2) ANTIGEN (FORMALDEHYDE INACTIVATED)\INFLUENZA B VIRUS B/BRISBANE/60/2008 ANTIGEN (FORMALDEHYDE INACTIVATED)
  6. ALIGN [Concomitant]
     Active Substance: BIFIDOBACTERIUM LONGUM SUBSP. INFANTIS
  7. KLOR? CON [Concomitant]
  8. VITAMIN D3 [Concomitant]
     Active Substance: CHOLECALCIFEROL
  9. LOSARTAN. [Concomitant]
     Active Substance: LOSARTAN
  10. CYCLOPHOSPHAMIDE. [Suspect]
     Active Substance: CYCLOPHOSPHAMIDE
     Indication: OVARIAN CANCER
     Route: 048
     Dates: start: 20210303
  11. FISH OIL [Concomitant]
     Active Substance: FISH OIL
  12. MAG64 [Concomitant]
     Active Substance: CALCIUM CHLORIDE\MAGNESIUM CHLORIDE
  13. ROSUVASTATIN. [Concomitant]
     Active Substance: ROSUVASTATIN
  14. ONDANSETRON [Concomitant]
     Active Substance: ONDANSETRON
  15. VITAMIN B12 [Concomitant]
     Active Substance: CYANOCOBALAMIN
  16. CARVEDILOL. [Concomitant]
     Active Substance: CARVEDILOL
  17. EZETIMIBE. [Concomitant]
     Active Substance: EZETIMIBE
  18. MIRALAX [Concomitant]
     Active Substance: POLYETHYLENE GLYCOL 3350
  19. MULTIVITAMIN [Concomitant]
     Active Substance: VITAMINS

REACTIONS (1)
  - Fatigue [None]
